FAERS Safety Report 7418317-5 (Version None)
Quarter: 2011Q2

REPORT INFORMATION
  Report Type: 
  Country: None (occurrence: None)
  Receive Date: 20110415
  Receipt Date: 20110408
  Transmission Date: 20111010
  Serious: Yes (Death, Hospitalization)
  Sender: FDA-Public Use
  Company Number: A0787522A

PATIENT
  Age: 48 Year
  Sex: Male

DRUGS (1)
  1. AVANDIA [Suspect]
     Indication: DIABETES MELLITUS
     Dosage: 8MG PER DAY
     Route: 048
     Dates: start: 20001229, end: 20060726

REACTIONS (4)
  - CARDIAC ARREST [None]
  - CHOLECYSTITIS ACUTE [None]
  - SEPTIC SHOCK [None]
  - LIVER ABSCESS [None]
